FAERS Safety Report 7909002-1 (Version None)
Quarter: 2011Q4

REPORT INFORMATION
  Report Type: 
  Country: None (occurrence: None)
  Receive Date: 20111111
  Receipt Date: 20111107
  Transmission Date: 20120403
  Serious: Yes (Life-Threatening, Hospitalization)
  Sender: FDA-Public Use
  Company Number: PHHY2011ES098277

PATIENT
  Age: 78 Year
  Sex: Male

DRUGS (10)
  1. OSLIF BREEZHALER [Suspect]
     Dates: start: 20110801
  2. BUDESONIDE [Concomitant]
  3. TIOTROPIUM [Concomitant]
     Dosage: 1 DF, QD
  4. OMEPRAZOLE [Concomitant]
  5. ENALAPRIL MALEATE [Concomitant]
     Dosage: 1 DF, QD
  6. TRAZODONE HCL [Concomitant]
  7. ASPIRIN [Concomitant]
  8. CITALOPRAM HYDROBROMIDE [Concomitant]
  9. SIMVASTATIN [Concomitant]
  10. OSLIF BREEZHALER [Suspect]
     Indication: CHRONIC OBSTRUCTIVE PULMONARY DISEASE
     Dosage: 150 UG, QD
     Dates: start: 20110101

REACTIONS (2)
  - DYSPNOEA [None]
  - ATRIOVENTRICULAR BLOCK COMPLETE [None]
